FAERS Safety Report 4452145-8 (Version None)
Quarter: 2004Q3

REPORT INFORMATION
  Report Type: 
  Country: None (occurrence: None)
  Receive Date: 20040914
  Receipt Date: 20040914
  Transmission Date: 20050211
  Serious: Yes (Hospitalization)
  Sender: FDA-Public Use
  Company Number: None

PATIENT
  Age: 72 Year
  Sex: Male
  Weight: 86 kg

DRUGS (17)
  1. WARFARIN SODIUM [Suspect]
     Indication: DEEP VEIN THROMBOSIS
     Dosage: 16.25MG PER WEEK ORAL
     Route: 048
     Dates: start: 19990608, end: 20040323
  2. WARFARIN SODIUM [Suspect]
     Indication: PULMONARY EMBOLISM
     Dosage: 16.25MG PER WEEK ORAL
     Route: 048
     Dates: start: 19990608, end: 20040323
  3. ACETAMINOPHEN [Concomitant]
  4. HYDROPHOR TOP OINT [Concomitant]
  5. FOLIC ACID [Concomitant]
  6. VITAMIN REPLACEMENT [Concomitant]
  7. ALOH/MG TRIS [Concomitant]
  8. SIMVASTATIN [Concomitant]
  9. AMITRIPTYLINE HCL [Concomitant]
  10. FAMOTIDINE [Concomitant]
  11. RABEPRAZOLE NA [Concomitant]
  12. FERROUS SULFATE TAB [Concomitant]
  13. DOCUSATE NA [Concomitant]
  14. NITROGLYCERIN SL [Concomitant]
  15. ATENOLOL [Concomitant]
  16. LISINOPRIL [Concomitant]
  17. LACTULOSE [Concomitant]

REACTIONS (4)
  - ASTHENIA [None]
  - DIZZINESS POSTURAL [None]
  - FAECES DISCOLOURED [None]
  - HAEMATOCHEZIA [None]
